FAERS Safety Report 19977441 (Version 1)
Quarter: 2021Q4

REPORT INFORMATION
  Report Type: Spontaneous
  Country: US (occurrence: US)
  Receive Date: 20211019
  Receipt Date: 20211019
  Transmission Date: 20220303
  Serious: Yes (Death)
  Sender: FDA-Public Use
  Company Number: None

PATIENT
  Age: 90 Year
  Sex: Male

DRUGS (1)
  1. TOCILIZUMAB [Suspect]
     Active Substance: TOCILIZUMAB
     Indication: COVID-19
     Route: 042
     Dates: start: 20210817, end: 20210817

REACTIONS (4)
  - Melaena [None]
  - Haemoglobin decreased [None]
  - Gastric haemorrhage [None]
  - Haemorrhage [None]

NARRATIVE: CASE EVENT DATE: 20210819
